FAERS Safety Report 4446895-7 (Version None)
Quarter: 2004Q3

REPORT INFORMATION
  Report Type: 
  Country: None (occurrence: None)
  Receive Date: 20040908
  Receipt Date: 20040823
  Transmission Date: 20050211
  Serious: Yes (Hospitalization, Other)
  Sender: FDA-Public Use
  Company Number: M2004-1189

PATIENT
  Age: 17 Year
  Sex: Female

DRUGS (4)
  1. PENICILLIN VK [Suspect]
     Indication: INFECTION
     Dosage: ORAL
     Route: 048
  2. CYCLIZINE UNK, UNKNOWN MANUFACTURER [Suspect]
     Indication: NAUSEA
     Dosage: 50MG, PRN, ORAL
     Route: 048
  3. PROCHLORPERAZINE [Suspect]
     Indication: VOMITING
     Dosage: 25 MG RECTALLY
     Route: 054
  4. INTRAVENOUS NORMAL SALINE [Concomitant]

REACTIONS (5)
  - DEHYDRATION [None]
  - DRUG EXPOSURE DURING PREGNANCY [None]
  - INTRA-UTERINE DEATH [None]
  - NAUSEA [None]
  - VOMITING [None]
